FAERS Safety Report 4266788-8 (Version None)
Quarter: 2004Q1

REPORT INFORMATION
  Report Type: 
  Country: None (occurrence: None)
  Receive Date: 20040108
  Receipt Date: 20030710
  Transmission Date: 20041129
  Serious: No
  Sender: FDA-Public Use
  Company Number: US-BRISTOL-MYERS SQUIBB COMPANY-12323820

PATIENT
  Sex: Female

DRUGS (1)
  1. CARDIOLITE [Suspect]
     Dosage: 10MCI OF CARDIOLITE FOR THE RESTING PORTION OF THE STUDY + 30 MCI FOR THE STRESS PORTION
     Dates: start: 20030703, end: 20030703

REACTIONS (1)
  - URTICARIA GENERALISED [None]
